FAERS Safety Report 8598137-9 (Version None)
Quarter: 2012Q3

REPORT INFORMATION
  Report Type: 
  Country: None (occurrence: None)
  Receive Date: 20120816
  Receipt Date: 20120808
  Transmission Date: 20120928
  Serious: Yes (Hospitalization, Other)
  Sender: FDA-Public Use
  Company Number: US-BAYER-2012-038123

PATIENT
  Age: 20 Year
  Sex: Female
  Weight: 79.365 kg

DRUGS (8)
  1. YAZ [Suspect]
     Indication: ACNE
     Dosage: UNK
     Dates: start: 20070901, end: 20080301
  2. DROSPIRENONE AND ETHINYL ESTRADIOL [Suspect]
     Indication: PREMENSTRUAL SYNDROME
     Dosage: UNK
     Dates: start: 20090101, end: 20100801
  3. YAZ [Suspect]
     Indication: PREMENSTRUAL SYNDROME
     Dosage: UNK
     Dates: start: 20090101, end: 20100801
  4. DROSPIRENONE AND ETHINYL ESTRADIOL [Suspect]
     Indication: ACNE
     Dosage: UNK
     Dates: start: 20070901, end: 20080301
  5. YASMIN [Suspect]
  6. IBUPROFEN [Concomitant]
     Dosage: 800 UNK, UNK
  7. THYROID TAB [Concomitant]
     Dosage: 60 MG, 1 TABLET DAILY
     Route: 048
     Dates: start: 20100804
  8. SPIRONOLACTONE [Concomitant]
     Dosage: 100 MG, 1 TABLET BID
     Route: 048
     Dates: start: 20090123, end: 20110811

REACTIONS (21)
  - CHOLELITHIASIS [None]
  - PAIN [None]
  - HYPOAESTHESIA [None]
  - INJURY [None]
  - FEAR OF DEATH [None]
  - NAUSEA [None]
  - DYSPNOEA [None]
  - ATTENTION DEFICIT/HYPERACTIVITY DISORDER [None]
  - ANXIETY [None]
  - PULMONARY EMBOLISM [None]
  - CHEST PAIN [None]
  - OEDEMA PERIPHERAL [None]
  - PARAESTHESIA [None]
  - CHOLECYSTECTOMY [None]
  - GALLBLADDER POLYP [None]
  - DEPRESSION [None]
  - EMOTIONAL DISTRESS [None]
  - NERVOUSNESS [None]
  - DEEP VEIN THROMBOSIS [None]
  - PAIN IN EXTREMITY [None]
  - MUSCLE SPASMS [None]
